APPROVED DRUG PRODUCT: VIVJOA
Active Ingredient: OTESECONAZOLE
Strength: 150MG
Dosage Form/Route: CAPSULE;ORAL
Application: N215888 | Product #001
Applicant: MYCOVIA PHARMACEUTICALS INC
Approved: Apr 26, 2022 | RLD: Yes | RS: Yes | Type: RX

PATENTS:
Patent 11247981 | Expires: May 9, 2033
Patent 8754227 | Expires: Apr 22, 2031
Patent 8236962 | Expires: Apr 22, 2031
Patent 9840492 | Expires: Mar 17, 2036
Patent 10414751 | Expires: Mar 17, 2036

EXCLUSIVITY:
Code: NCE | Date: Apr 26, 2027
Code: GAIN | Date: Apr 26, 2032